FAERS Safety Report 6754481-9 (Version None)
Quarter: 2010Q2

REPORT INFORMATION
  Report Type: 
  Country: None (occurrence: None)
  Receive Date: 20100601
  Receipt Date: 20100517
  Transmission Date: 20101027
  Serious: Yes (Death, Other)
  Sender: FDA-Public Use
  Company Number: CLOF-1000051

PATIENT
  Age: 56 Year
  Sex: Female
  Weight: 70.8 kg

DRUGS (12)
  1. CLOLAR [Suspect]
     Indication: LEUKAEMIA
     Dosage: 30 MG/M2, QD, INTRAVENOUS
     Route: 042
     Dates: start: 20070111, end: 20070114
  2. CAMPATH [Suspect]
     Indication: LEUKAEMIA
     Dosage: 20 MG, QD, INTRAVENOUS
     Route: 042
     Dates: start: 20070111, end: 20070114
  3. METHYLPREDNISOLONE [Concomitant]
  4. PREVACID [Concomitant]
  5. ZOLOFT [Concomitant]
  6. VANCOMYCIN [Concomitant]
  7. AZTREONAM (AZTREONAM) [Concomitant]
  8. GANCICLOVIR [Concomitant]
  9. FLAGYL [Concomitant]
  10. CLARITIN [Concomitant]
  11. SEREVENT [Concomitant]
  12. FLOVENT [Concomitant]

REACTIONS (10)
  - BRADYCARDIA [None]
  - CARDIAC FAILURE CONGESTIVE [None]
  - CARDIO-RESPIRATORY ARREST [None]
  - CHEST PAIN [None]
  - CONFUSIONAL STATE [None]
  - DYSPNOEA [None]
  - FALL [None]
  - HYPOTENSION [None]
  - HYPOXIA [None]
  - PLEURAL EFFUSION [None]
